FAERS Safety Report 24872434 (Version 1)
Quarter: 2025Q1

REPORT INFORMATION
  Report Type: Report from Study
  Country: ES (occurrence: ES)
  Receive Date: 20250122
  Receipt Date: 20250122
  Transmission Date: 20250409
  Serious: Yes (Hospitalization, Other)
  Sender: ABBVIE
  Company Number: ES-ABBVIE-6092939

PATIENT
  Age: 58 Year
  Sex: Female

DRUGS (1)
  1. CARBIDOPA\LEVODOPA [Suspect]
     Active Substance: CARBIDOPA\LEVODOPA
     Indication: Parkinson^s disease
     Route: 058
     Dates: start: 20241211

REACTIONS (8)
  - Loss of consciousness [Recovered/Resolved]
  - Somnambulism [Unknown]
  - Nervousness [Unknown]
  - Unresponsive to stimuli [Unknown]
  - Hypotension [Unknown]
  - Anxiety [Recovered/Resolved]
  - Speech disorder [Unknown]
  - Heart rate decreased [Unknown]

NARRATIVE: CASE EVENT DATE: 20250115
